FAERS Safety Report 4777160-6 (Version None)
Quarter: 2005Q3

REPORT INFORMATION
  Report Type: 
  Country: None (occurrence: None)
  Receive Date: 20050923
  Receipt Date: 20050913
  Transmission Date: 20060218
  Serious: Yes (Death)
  Sender: FDA-Public Use
  Company Number: CA-ROCHE-417701

PATIENT
  Age: 62 Year
  Sex: Female

DRUGS (10)
  1. XELODA [Suspect]
     Indication: BREAST CANCER
     Route: 048
  2. LIPITOR [Concomitant]
     Route: 048
     Dates: end: 20050615
  3. VITAMIN B6 [Concomitant]
     Route: 030
     Dates: end: 20050615
  4. SENOKOT [Concomitant]
     Route: 048
     Dates: end: 20050615
  5. GLYBURIDE [Concomitant]
     Route: 048
     Dates: end: 20050615
  6. COZAAR [Concomitant]
     Indication: HYPERTENSION
     Route: 048
     Dates: start: 20050915
  7. ASPIRIN [Concomitant]
     Route: 048
     Dates: end: 20050915
  8. PAXIL [Concomitant]
     Route: 048
     Dates: end: 20050915
  9. DILAUDID [Concomitant]
     Route: 048
     Dates: end: 20050915
  10. DILTIAZEM HCL [Concomitant]
     Indication: HYPERTENSION
     Route: 048
     Dates: end: 20050915

REACTIONS (7)
  - DRUG TOXICITY [None]
  - DYSPHAGIA [None]
  - MUCOSAL INFLAMMATION [None]
  - NEUTROPENIA [None]
  - SKIN DISCOLOURATION [None]
  - SKIN EXFOLIATION [None]
  - STOMATITIS [None]
